FAERS Safety Report 6686257-5 (Version None)
Quarter: 2010Q2

REPORT INFORMATION
  Report Type: 
  Country: None (occurrence: None)
  Receive Date: 20100419
  Receipt Date: 20100413
  Transmission Date: 20101027
  Serious: Yes (Hospitalization)
  Sender: FDA-Public Use
  Company Number: US-B.I. PHARMACEUTICALS,INC./RIDGEFIELD-2010-BP-03288BP

PATIENT
  Sex: Male

DRUGS (9)
  1. SPIRIVA [Suspect]
     Indication: CHRONIC OBSTRUCTIVE PULMONARY DISEASE
     Dosage: 18 MCG
     Route: 055
     Dates: start: 20080101
  2. ADVAIR DISKUS 100/50 [Concomitant]
     Indication: CHRONIC OBSTRUCTIVE PULMONARY DISEASE
  3. PLAVIX [Concomitant]
     Indication: STENT PLACEMENT
  4. UROXATRAL [Concomitant]
     Indication: PROSTATE CANCER
  5. LIPITOR [Concomitant]
     Indication: MYOCARDIAL INFARCTION
  6. METOPROLOL TARTRATE [Concomitant]
     Indication: MYOCARDIAL INFARCTION
  7. AMLODIPINE [Concomitant]
     Indication: HYPERTENSION
  8. QUINAPRIL [Concomitant]
     Indication: HYPERTENSION
  9. ASPIRIN [Concomitant]
     Indication: STENT PLACEMENT

REACTIONS (6)
  - CONSTIPATION [None]
  - DRY MOUTH [None]
  - HEART RATE INCREASED [None]
  - HEART RATE IRREGULAR [None]
  - PNEUMONIA [None]
  - URINARY RETENTION [None]
